FAERS Safety Report 5264645-1 (Version None)
Quarter: 2007Q1

REPORT INFORMATION
  Report Type: 
  Country: None (occurrence: None)
  Receive Date: 20070314
  Receipt Date: 20070301
  Transmission Date: 20070707
  Serious: Yes (Hospitalization)
  Sender: FDA-Public Use
  Company Number: PHBS2007ES03642

PATIENT
  Age: 82 Year
  Sex: Female

DRUGS (5)
  1. DICLOFENAC SODIUM [Suspect]
     Dosage: 150 MG/DAY
     Route: 048
     Dates: start: 20061001, end: 20070119
  2. DIGOXIN [Concomitant]
     Dosage: 250 UG
     Route: 048
  3. ALDACTONE [Concomitant]
     Dosage: 25 MG/DAY
     Route: 048
  4. SEGURIL [Concomitant]
     Dosage: 40 MG/DAY
     Route: 048
  5. SINTROM [Suspect]
     Indication: ARRHYTHMIA
     Dosage: 4 MG/DAY
     Route: 048
     Dates: start: 20060901, end: 20070119

REACTIONS (6)
  - DRUG INTERACTION [None]
  - GINGIVITIS [None]
  - HAEMOGLOBIN DECREASED [None]
  - INTERNATIONAL NORMALISED RATIO INCREASED [None]
  - MICROCYTIC ANAEMIA [None]
  - PROTHROMBIN TIME PROLONGED [None]
